FAERS Safety Report 9629538 (Version 1)
Quarter: 2013Q4

REPORT INFORMATION
  Report Type: Spontaneous
  Country: US (occurrence: US)
  Receive Date: 20131017
  Receipt Date: 20131017
  Transmission Date: 20140711
  Serious: Yes (Other)
  Sender: FDA-Public Use
  Company Number: US-JNJFOC-20131006267

PATIENT
  Age: 74 Year
  Sex: Female
  Weight: 72.58 kg

DRUGS (6)
  1. INVOKANA [Suspect]
     Indication: DIABETES MELLITUS
     Route: 048
     Dates: start: 201309
  2. INVOKANA [Suspect]
     Indication: DIABETES MELLITUS
     Route: 048
     Dates: start: 201309, end: 201309
  3. NOVOLOG FLEXPEN [Concomitant]
     Indication: DIABETES MELLITUS
     Route: 058
     Dates: start: 20131008
  4. NOVOLOG FLEXPEN [Concomitant]
     Indication: DIABETES MELLITUS
     Route: 058
     Dates: end: 20131007
  5. LANTUS SOLOSTAR [Concomitant]
     Indication: DIABETES MELLITUS
     Route: 058
     Dates: start: 201309, end: 20131007
  6. LANTUS SOLOSTAR [Concomitant]
     Indication: DIABETES MELLITUS
     Route: 058
     Dates: start: 20131008

REACTIONS (14)
  - Cellulitis [Not Recovered/Not Resolved]
  - Dehydration [Not Recovered/Not Resolved]
  - Dyspnoea [Recovering/Resolving]
  - Oedema mouth [Recovered/Resolved]
  - Pollakiuria [Not Recovered/Not Resolved]
  - Tremor [Unknown]
  - Rash [Not Recovered/Not Resolved]
  - Vision blurred [Not Recovered/Not Resolved]
  - Dysuria [Recovered/Resolved]
  - Chromaturia [Recovered/Resolved]
  - Constipation [Recovering/Resolving]
  - Insomnia [Not Recovered/Not Resolved]
  - Off label use [Unknown]
  - Drug dose omission [Unknown]
